FAERS Safety Report 8862926 (Version 1)
Quarter: 2012Q4

REPORT INFORMATION
  Report Type: 
  Country: US (occurrence: US)
  Receive Date: 20121026
  Receipt Date: 20121026
  Transmission Date: 20130627
  Serious: No
  Sender: FDA-Public Use
  Company Number: US-ASTRAZENECA-2009SE29638

PATIENT
  Sex: Female

DRUGS (2)
  1. CRESTOR [Suspect]
     Indication: BLOOD CHOLESTEROL ABNORMAL
     Route: 048
     Dates: start: 20090816
  2. DAYPRO [Concomitant]
     Indication: PAIN

REACTIONS (2)
  - Pain in jaw [Unknown]
  - Musculoskeletal pain [Unknown]
